FAERS Safety Report 20064415 (Version 6)
Quarter: 2022Q1

REPORT INFORMATION
  Report Type: Spontaneous
  Country: BE (occurrence: BE)
  Receive Date: 20211112
  Receipt Date: 20220106
  Transmission Date: 20220424
  Serious: Yes (Death, Life-Threatening, Hospitalization, Other)
  Sender: FDA-Public Use
  Company Number: BE-CELGENE-BEL-20210801708

PATIENT
  Age: 78 Year
  Sex: Male
  Weight: 82 kg

DRUGS (19)
  1. AZACITIDINE [Suspect]
     Active Substance: AZACITIDINE
     Indication: Myelodysplastic syndrome
     Dosage: 75 MILLIGRAM/SQ.METER
     Route: 058
     Dates: start: 20210719, end: 20210727
  2. VENETOCLAX [Suspect]
     Active Substance: VENETOCLAX
     Indication: Myelodysplastic syndrome
     Dosage: UNK
     Route: 065
  3. SOTALOL [Concomitant]
     Active Substance: SOTALOL
     Indication: Atrial fibrillation
     Dosage: 160 MILLIGRAM, QD (80 MILLIGRAM)
     Route: 048
     Dates: start: 2017
  4. ZOLPIDEM [Concomitant]
     Active Substance: ZOLPIDEM TARTRATE
     Indication: Prophylaxis
     Dosage: 10 MILLIGRAM, QD, 10 MILLIGRAM
     Route: 048
     Dates: start: 2021
  5. TIOTROPIUM BROMIDE [Concomitant]
     Active Substance: TIOTROPIUM BROMIDE
     Indication: Chronic obstructive pulmonary disease
     Dosage: 20 MICROGRAM, QD (10 MICROGRAM)
     Route: 055
     Dates: start: 20180604
  6. TIOTROPIUM BROMIDE [Concomitant]
     Active Substance: TIOTROPIUM BROMIDE
     Indication: Bronchospasm
  7. PERINDOPRIL ARGININE [Concomitant]
     Active Substance: PERINDOPRIL ARGININE
     Indication: Hypertension
     Dosage: 1.25 MILLIGRAM, QD, (1.25 MILLIGRAM)
     Route: 048
     Dates: start: 20170515, end: 20210804
  8. GELATIN [Concomitant]
     Active Substance: GELATIN
     Indication: Diarrhoea
     Dosage: 2000 MILLIGRAM, QD, (50 MILLIGRAM)
     Route: 048
     Dates: start: 202107
  9. GEMFIBROZIL [Concomitant]
     Active Substance: GEMFIBROZIL
     Indication: Hypercholesterolaemia
     Dosage: 450 MILLIGRAM, QD, (450 MILLIGRAM)
     Route: 048
     Dates: start: 2021
  10. EZETIMIBE [Concomitant]
     Active Substance: EZETIMIBE
     Indication: Hypercholesterolaemia
     Dosage: 1, UNK, QD (10/20MG)
     Route: 048
     Dates: start: 2017
  11. EZETIMIBE [Concomitant]
     Active Substance: EZETIMIBE
     Dosage: 10 MILLIGRAM
     Route: 048
     Dates: start: 20210730, end: 20210811
  12. DIOSMIN [Concomitant]
     Active Substance: DIOSMIN
     Indication: Thrombosis prophylaxis
     Dosage: 2, UNK, QD (450/50MG)
     Route: 048
     Dates: start: 201705, end: 20210812
  13. FEBUXOSTAT [Concomitant]
     Active Substance: FEBUXOSTAT
     Indication: Prophylaxis
     Dosage: 80 MILLIGRAM, QD, (80 MILLIGRAM)
     Route: 048
     Dates: start: 201909
  14. FEBUXOSTAT [Concomitant]
     Active Substance: FEBUXOSTAT
     Indication: Gout
     Dosage: UNK
  15. CASPOFUNGIN [Concomitant]
     Active Substance: CASPOFUNGIN
     Indication: Torulopsis infection
     Dosage: UNK
     Route: 065
     Dates: start: 20210814
  16. SIMVASTATIN [Concomitant]
     Active Substance: SIMVASTATIN
     Indication: Blood cholesterol increased
     Dosage: 20 MILLIGRAM, QD
     Route: 048
     Dates: start: 20210730
  17. ACYCLOVIR [Concomitant]
     Active Substance: ACYCLOVIR
     Indication: Herpes simplex
     Dosage: UNK
     Route: 065
     Dates: start: 20210814
  18. Xylocain [Concomitant]
     Indication: Dental prosthesis user
     Dosage: UNK
     Route: 065
     Dates: start: 2021
  19. EZETIMIBE [Concomitant]
     Active Substance: EZETIMIBE
     Indication: Blood cholesterol increased
     Dosage: 10 MILLIGRAM, QD
     Dates: start: 20210730, end: 20210811

REACTIONS (4)
  - Sepsis [Fatal]
  - Pericardial effusion [Not Recovered/Not Resolved]
  - Febrile neutropenia [Not Recovered/Not Resolved]
  - Stomatitis [Not Recovered/Not Resolved]

NARRATIVE: CASE EVENT DATE: 20210730
